FAERS Safety Report 7947418-8 (Version None)
Quarter: 2011Q4

REPORT INFORMATION
  Report Type: 
  Country: None (occurrence: None)
  Receive Date: 20111130
  Receipt Date: 20111116
  Transmission Date: 20120403
  Serious: Yes (Other)
  Sender: FDA-Public Use
  Company Number: US-PAR PHARMACEUTICAL, INC-2011SCPR003442

PATIENT

DRUGS (1)
  1. PROPRANOLOL HYDROCHLORIDE [Suspect]
     Indication: HAEMANGIOMA
     Dosage: 1 - 2.1 MG/KG/DAY, BID
     Route: 048

REACTIONS (3)
  - SOMNOLENCE [None]
  - TOXICITY TO VARIOUS AGENTS [None]
  - IRRITABILITY [None]
